FAERS Safety Report 7502181-X (Version None)
Quarter: 2011Q2

REPORT INFORMATION
  Report Type: 
  Country: None (occurrence: None)
  Receive Date: 20110523
  Receipt Date: 20110523
  Transmission Date: 20111010
  Serious: Yes (Hospitalization)
  Sender: FDA-Public Use
  Company Number: None

PATIENT
  Age: 52 Year
  Sex: Male
  Weight: 130 kg

DRUGS (1)
  1. VANCOMYCIN [Suspect]
     Dosage: 1250 MG EVERY DAY IV
     Route: 042
     Dates: start: 20110319, end: 20110321

REACTIONS (2)
  - RENAL IMPAIRMENT [None]
  - BLOOD CREATININE INCREASED [None]
